FAERS Safety Report 26184687 (Version 1)
Quarter: 2025Q4

REPORT INFORMATION
  Report Type: Spontaneous
  Country: EU (occurrence: EU)
  Receive Date: 20251222
  Receipt Date: 20251222
  Transmission Date: 20260118
  Serious: Yes (Hospitalization, Other)
  Sender: AUROBINDO
  Company Number: EU-SAMSUNG BIOEPIS-SB-2025-40099

PATIENT
  Age: 78 Year
  Sex: Female

DRUGS (4)
  1. TAMOXIFEN [Suspect]
     Active Substance: TAMOXIFEN
     Indication: Breast cancer
     Dosage: UNK
     Route: 065
  2. TRASTUZUMAB [Suspect]
     Active Substance: TRASTUZUMAB
     Indication: Breast cancer
     Dosage: UNK
     Route: 065
  3. OSIMERTINIB [Suspect]
     Active Substance: OSIMERTINIB
     Indication: Lung adenocarcinoma
     Dosage: 80 MILLIGRAM, ONCE A DAY
     Route: 065
  4. OSIMERTINIB [Suspect]
     Active Substance: OSIMERTINIB
     Dosage: 80 MILLIGRAM (RESTARTED AT A LOWER DOSE WITH CLOSE MONITORING OF TOXICITY (80MG 2-DAYS-ON/1-DAY-OFF TREATMENT REGIMEN);)
     Route: 065

REACTIONS (3)
  - Pneumonitis [Recovered/Resolved]
  - Ejection fraction decreased [Recovered/Resolved]
  - Lung adenocarcinoma [Unknown]
